FAERS Safety Report 21582654 (Version 1)
Quarter: 2022Q4

REPORT INFORMATION
  Report Type: Report from Study
  Country: TR (occurrence: TR)
  Receive Date: 20221111
  Receipt Date: 20221111
  Transmission Date: 20230112
  Serious: Yes (Death, Other)
  Sender: FDA-Public Use
  Company Number: TR-Nexus Pharma-000154

PATIENT

DRUGS (1)
  1. COLISTIMETHATE SODIUM [Suspect]
     Active Substance: COLISTIMETHATE SODIUM
     Indication: Acinetobacter infection
     Route: 042

REACTIONS (2)
  - Nephropathy toxic [Unknown]
  - Facial paralysis [Fatal]
